FAERS Safety Report 24975844 (Version 3)
Quarter: 2025Q2

REPORT INFORMATION
  Report Type: Spontaneous
  Country: CZ (occurrence: CZ)
  Receive Date: 20250217
  Receipt Date: 20250509
  Transmission Date: 20250717
  Serious: Yes (Other)
  Sender: UCB
  Company Number: CZ-GLENMARK PHARMACEUTICALS-2025GMK097371

PATIENT
  Age: 33 Year
  Sex: Female

DRUGS (2)
  1. LACOSAMIDE [Suspect]
     Active Substance: LACOSAMIDE
     Indication: Epilepsy
     Dosage: 250 MILLIGRAM, ONCE DAILY (QD)
     Dates: start: 2019
  2. LACOSAMIDE [Suspect]
     Active Substance: LACOSAMIDE
     Dosage: 50 MILLIGRAM, BID
     Dates: start: 2019

REACTIONS (2)
  - Seizure [Recovered/Resolved]
  - Drug resistance [Unknown]
